FAERS Safety Report 5708332-1 (Version None)
Quarter: 2008Q2

REPORT INFORMATION
  Report Type: 
  Country: None (occurrence: None)
  Receive Date: 20080417
  Receipt Date: 20080409
  Transmission Date: 20081010
  Serious: Yes (Hospitalization)
  Sender: FDA-Public Use
  Company Number: US-KINGPHARMUSA00001-K200800409

PATIENT

DRUGS (14)
  1. FLORINEF [Suspect]
     Indication: ADDISON'S DISEASE
     Dosage: .1 MG, QD
     Dates: start: 20080313
  2. FLORINEF [Suspect]
     Dosage: .1 MG, QD
  3. ZOCOR [Concomitant]
  4. HYDROCORTISONE [Concomitant]
  5. INSULIN [Concomitant]
  6. PARACETAMOL [Concomitant]
  7. DIPROSALIC [Concomitant]
  8. HYPURIN NEUTRAL [Concomitant]
  9. ISOPHANE INSULIN [Concomitant]
  10. ACETAMINOPHEN W/ CODEINE [Concomitant]
  11. TIOCONAZOLE [Concomitant]
  12. IBANDRONIC ACID [Concomitant]
  13. DEXTROSE [Concomitant]
  14. FERROUS SUL ELX [Concomitant]

REACTIONS (7)
  - ASTHENIA [None]
  - FATIGUE [None]
  - MALAISE [None]
  - PRESYNCOPE [None]
  - PRURITUS GENERALISED [None]
  - SYNCOPE [None]
  - VIRAL INFECTION [None]
